FAERS Safety Report 26091310 (Version 1)
Quarter: 2025Q4

REPORT INFORMATION
  Report Type: Spontaneous
  Country: US (occurrence: US)
  Receive Date: 20251126
  Receipt Date: 20251126
  Transmission Date: 20260117
  Serious: Yes (Death, Hospitalization)
  Sender: AMGEN
  Company Number: US-AMGEN-USASP2025230734

PATIENT
  Age: 2 Year
  Sex: Female

DRUGS (3)
  1. BEVACIZUMAB [Suspect]
     Active Substance: BEVACIZUMAB
     Indication: Glioma
     Dosage: UNK UNK, Q2WK
     Route: 065
  2. CABOZANTINIB [Concomitant]
     Active Substance: CABOZANTINIB
     Indication: Glioma
     Dosage: UNK UNK, QD
     Route: 065
  3. LORLATINIB [Concomitant]
     Active Substance: LORLATINIB
     Indication: Glioma
     Dosage: 92 MILLIGRAM/SQ. METER, QD
     Route: 065

REACTIONS (4)
  - Death [Fatal]
  - Glioma [Unknown]
  - Depressed level of consciousness [Unknown]
  - Off label use [Unknown]
